FAERS Safety Report 13155179 (Version 1)
Quarter: 2017Q1

REPORT INFORMATION
  Report Type: Spontaneous
  Country: US (occurrence: US)
  Receive Date: 20170126
  Receipt Date: 20170126
  Transmission Date: 20170428
  Serious: No
  Sender: FDA-Public Use
  Company Number: US-MYLANLABS-2016M1007256

PATIENT
  Age: 48 Year
  Sex: Female

DRUGS (2)
  1. METOPROLOL TARTRATE TABLETS USP [Suspect]
     Active Substance: METOPROLOL TARTRATE
     Indication: OFF LABEL USE
  2. METOPROLOL TARTRATE TABLETS USP [Suspect]
     Active Substance: METOPROLOL TARTRATE
     Indication: MITRAL VALVE PROLAPSE
     Dosage: 50 MG, PM
     Route: 048

REACTIONS (2)
  - Tinnitus [Not Recovered/Not Resolved]
  - Abnormal dreams [Not Recovered/Not Resolved]

NARRATIVE: CASE EVENT DATE: 201511
